FAERS Safety Report 16748064 (Version 2)
Quarter: 2019Q3

REPORT INFORMATION
  Report Type: Spontaneous
  Country: CN (occurrence: CN)
  Receive Date: 20190827
  Receipt Date: 20190910
  Transmission Date: 20191005
  Serious: Yes (Other)
  Sender: FDA-Public Use
  Company Number: CN-ELI_LILLY_AND_COMPANY-CN201908008371

PATIENT
  Sex: Male

DRUGS (1)
  1. CIALIS [Suspect]
     Active Substance: TADALAFIL
     Indication: PULMONARY HYPERTENSION
     Dosage: 20 MG, UNKNOWN
     Route: 048
     Dates: start: 2012

REACTIONS (4)
  - Counterfeit product administered [Unknown]
  - Discomfort [Unknown]
  - Cardiac failure [Unknown]
  - Speech disorder [Unknown]

NARRATIVE: CASE EVENT DATE: 201908
